FAERS Safety Report 4963568-2 (Version None)
Quarter: 2006Q1

REPORT INFORMATION
  Report Type: 
  Country: None (occurrence: None)
  Receive Date: 20060330
  Receipt Date: 20060315
  Transmission Date: 20060701
  Serious: Yes (Other)
  Sender: FDA-Public Use
  Company Number: 223382

PATIENT
  Age: 61 Year
  Sex: Female
  Weight: 71 kg

DRUGS (8)
  1. AVASTIN [Suspect]
     Indication: COLON CANCER
     Dosage: 340 MG, Q2W, INTRAVENOUS
     Route: 042
     Dates: start: 20051108, end: 20060314
  2. OXALIPLATIN (OXALIPLATIN) [Suspect]
     Indication: COLON CANCER
     Dosage: 137 MG, Q2W
     Dates: start: 20051108, end: 20060314
  3. LEUCOVORIN CALCIUM [Suspect]
     Indication: COLON CANCER
     Dosage: 324 MG, INTRAVENOUS
     Route: 042
     Dates: start: 20051108, end: 20060314
  4. FLUOROURACIL [Suspect]
     Indication: COLON CANCER
     Dosage: SEE IMAGE, INTRAVENOUS
     Route: 042
     Dates: start: 20051108, end: 20060228
  5. LISINOPRIL [Concomitant]
  6. NAFTIDROFURYL (NAFRONYL OXALATE) [Concomitant]
  7. PANTOPRAZOLE SODIUM [Concomitant]
  8. DEXAMETHASONE [Concomitant]

REACTIONS (7)
  - BLOOD PRESSURE INCREASED [None]
  - BODY TEMPERATURE INCREASED [None]
  - BRONCHOSPASM [None]
  - CYANOSIS [None]
  - HEART RATE INCREASED [None]
  - MALAISE [None]
  - NAUSEA [None]
